FAERS Safety Report 5246007-6 (Version None)
Quarter: 2007Q1

REPORT INFORMATION
  Report Type: 
  Country: None (occurrence: None)
  Receive Date: 20070220
  Receipt Date: 20070213
  Transmission Date: 20070707
  Serious: Yes (Life-Threatening, Hospitalization, Other)
  Sender: FDA-Public Use
  Company Number: 2007-00349

PATIENT
  Age: 78 Year
  Sex: Male
  Weight: 77 kg

DRUGS (3)
  1. VELCADE [Suspect]
     Indication: MULTIPLE MYELOMA
     Dosage: 2.25 MG, UNK, INTRAVENOUS
     Route: 042
     Dates: start: 20070111, end: 20070115
  2. THALIDOMIDE [Suspect]
     Indication: MULTIPLE MYELOMA
     Dosage: 60.00 MG, UNK, ORAL
     Route: 048
     Dates: start: 20070111, end: 20070115
  3. PREDNISONE [Suspect]
     Indication: MULTIPLE MYELOMA

REACTIONS (4)
  - BRONCHITIS [None]
  - FEBRILE NEUTROPENIA [None]
  - PANCYTOPENIA [None]
  - PERFORMANCE STATUS DECREASED [None]
